FAERS Safety Report 8997154 (Version 1)
Quarter: 2013Q1

REPORT INFORMATION
  Report Type: Spontaneous
  Country: US (occurrence: US)
  Receive Date: 20130104
  Receipt Date: 20130104
  Transmission Date: 20140127
  Serious: No
  Sender: FDA-Public Use
  Company Number: PHEH2012US025702

PATIENT
  Sex: Male

DRUGS (11)
  1. TASIGNA [Suspect]
     Indication: WHITE BLOOD CELL DISORDER
     Dosage: 400 MG, BID
     Route: 048
     Dates: start: 20100105
  2. ZOCOR [Concomitant]
  3. NIASPAN [Concomitant]
  4. OMEPRAZOLE [Concomitant]
  5. COREG [Concomitant]
  6. GLIPIZIDE [Concomitant]
  7. METFORMIN [Concomitant]
  8. DIOVAN [Concomitant]
  9. ALTACE [Concomitant]
  10. LIPOSYN II [Concomitant]
  11. CALTRATE [Concomitant]

REACTIONS (1)
  - Diarrhoea [Unknown]
